FAERS Safety Report 5059259-2 (Version None)
Quarter: 2006Q2

REPORT INFORMATION
  Report Type: 
  Country: None (occurrence: None)
  Receive Date: 20060629
  Receipt Date: 20060310
  Transmission Date: 20061013
  Serious: No
  Sender: FDA-Public Use
  Company Number: PHEH2006US03256

PATIENT
  Sex: Female

DRUGS (4)
  1. ENABLEX [Suspect]
     Indication: URINARY INCONTINENCE
     Dosage: 15 MG, QD
     Dates: start: 20060306
  2. LOVASTATIN [Concomitant]
  3. METOPROLOL (METOPROLOL) [Concomitant]
  4. LEVOXYL [Concomitant]

REACTIONS (1)
  - DYSPNOEA [None]
